FAERS Safety Report 22121141 (Version 1)
Quarter: 2023Q1

REPORT INFORMATION
  Report Type: Spontaneous
  Country: US (occurrence: US)
  Receive Date: 20230321
  Receipt Date: 20230321
  Transmission Date: 20230417
  Serious: No
  Sender: FDA-Public Use
  Company Number: US-TAKEDA-2023TUS027611

PATIENT
  Sex: Male
  Weight: 2.8 kg

DRUGS (3)
  1. ENTYVIO [Suspect]
     Active Substance: VEDOLIZUMAB
     Indication: Colitis ulcerative
     Dosage: 300 MILLIGRAM
     Route: 042
     Dates: start: 20230306
  2. IRON [Suspect]
     Active Substance: IRON
     Indication: Product used for unknown indication
     Dosage: UNK UNK, QD
     Route: 065
  3. DIVALPROEX SODIUM [Concomitant]
     Active Substance: DIVALPROEX SODIUM
     Dosage: 500 MILLIGRAM, QD

REACTIONS (8)
  - Migraine [Unknown]
  - Secretion discharge [Unknown]
  - Weight decreased [Unknown]
  - Dizziness [Unknown]
  - Therapeutic reaction time decreased [Unknown]
  - Vomiting [Unknown]
  - Oropharyngeal pain [Unknown]
  - Nausea [Recovered/Resolved]
